FAERS Safety Report 26196389 (Version 1)
Quarter: 2025Q4

REPORT INFORMATION
  Report Type: Spontaneous
  Country: EC (occurrence: EC)
  Receive Date: 20251224
  Receipt Date: 20251224
  Transmission Date: 20260118
  Serious: Yes (Hospitalization, Other)
  Sender: ROCHE
  Company Number: EC-ROCHE-10000464281

PATIENT
  Age: 48 Year
  Sex: Female

DRUGS (3)
  1. MABTHERA [Suspect]
     Active Substance: RITUXIMAB
     Indication: Systemic lupus erythematosus
     Route: 042
     Dates: start: 20200114
  2. RITUXIMAB [Suspect]
     Active Substance: RITUXIMAB
     Indication: Systemic lupus erythematosus
  3. THALIDOMIDE [Concomitant]
     Active Substance: THALIDOMIDE

REACTIONS (9)
  - Pericarditis [Recovering/Resolving]
  - Off label use [Unknown]
  - Cough [Recovered/Resolved]
  - Nausea [Recovered/Resolved]
  - Oedema [Unknown]
  - Tachycardia [Unknown]
  - Decreased immune responsiveness [Unknown]
  - Insomnia [Unknown]
  - Arrhythmia [Recovered/Resolved]

NARRATIVE: CASE EVENT DATE: 20250101
